FAERS Safety Report 5700545-8 (Version None)
Quarter: 2008Q2

REPORT INFORMATION
  Report Type: 
  Country: None (occurrence: None)
  Receive Date: 20080407
  Receipt Date: 20080325
  Transmission Date: 20081010
  Serious: Yes (Hospitalization)
  Sender: FDA-Public Use
  Company Number: 2008BI006580

PATIENT
  Age: 63 Year
  Sex: Female
  Weight: 75.7507 kg

DRUGS (1)
  1. AVONEX [Suspect]
     Indication: MULTIPLE SCLEROSIS
     Dosage: 30 UG;QW;IM
     Route: 030
     Dates: start: 19980701

REACTIONS (7)
  - JOINT SWELLING [None]
  - MUSCULOSKELETAL DISCOMFORT [None]
  - NO THERAPEUTIC RESPONSE [None]
  - OEDEMA PERIPHERAL [None]
  - PNEUMONIA [None]
  - SKIN ULCER [None]
  - URINARY TRACT INFECTION [None]
